FAERS Safety Report 9815292 (Version 1)
Quarter: 2014Q1

REPORT INFORMATION
  Report Type: Spontaneous
  Country: US (occurrence: US)
  Receive Date: 20140114
  Receipt Date: 20140114
  Transmission Date: 20141002
  Serious: Yes (Other)
  Sender: FDA-Public Use
  Company Number: US-ASTRAZENECA-2014SE00944

PATIENT
  Age: 70 Year
  Sex: Male
  Weight: 79.4 kg

DRUGS (13)
  1. METOPROLOL [Suspect]
     Indication: CARDIAC DISORDER
     Route: 048
  2. METOPROLOL [Suspect]
     Indication: BLOOD PRESSURE ABNORMAL
     Route: 048
  3. CRESTOR [Suspect]
     Indication: BLOOD CHOLESTEROL INCREASED
     Route: 048
     Dates: start: 2004
  4. HYDROCHLORTHIAZIDE [Suspect]
     Indication: BLOOD PRESSURE ABNORMAL
     Route: 065
  5. HYDROCHLORTHIAZIDE [Suspect]
     Indication: CARDIAC DISORDER
     Route: 065
  6. ASPIRIN [Concomitant]
     Indication: CARDIAC DISORDER
     Route: 048
  7. LANTUS INSULIN [Concomitant]
     Indication: DIABETES MELLITUS
     Dosage: 15-18U UNK
     Route: 058
  8. LANTUS INSULIN [Concomitant]
     Indication: DIABETES MELLITUS
     Route: 058
  9. METFORMIN [Concomitant]
     Indication: DIABETES MELLITUS
     Route: 048
  10. BENAZEPRIL [Concomitant]
     Indication: CARDIAC DISORDER
     Route: 048
  11. MULTIVITAMIN [Concomitant]
     Indication: SUPPLEMENTATION THERAPY
     Dosage: DAILY
     Route: 048
  12. CALCIUM [Concomitant]
     Indication: SUPPLEMENTATION THERAPY
     Route: 048
  13. VIT C [Concomitant]
     Indication: SUPPLEMENTATION THERAPY
     Route: 048

REACTIONS (4)
  - Prostate cancer [Recovered/Resolved]
  - Prostatic specific antigen abnormal [Recovered/Resolved]
  - Blood glucose decreased [Unknown]
  - Hypertension [Unknown]
